FAERS Safety Report 25775618 (Version 6)
Quarter: 2025Q4

REPORT INFORMATION
  Report Type: Spontaneous
  Country: US (occurrence: US)
  Receive Date: 20250909
  Receipt Date: 20251107
  Transmission Date: 20260117
  Serious: Yes (Hospitalization, Other)
  Sender: ACCORD
  Company Number: US-Accord-503398

PATIENT
  Age: 25 Year
  Sex: Female
  Weight: 87.7 kg

DRUGS (24)
  1. TEMOZOLOMIDE [Suspect]
     Active Substance: TEMOZOLOMIDE
     Indication: Ewing^s sarcoma
     Dosage: 500 MG/M2, Q3WEEKS (100 MG/M2 DAILY FOR 5 DAYS)
     Dates: start: 20250804, end: 20250808
  2. IRINOTECAN [Suspect]
     Active Substance: IRINOTECAN
     Indication: Ewing^s sarcoma
     Dosage: 250 MG/M2, Q3WEEKS (50 MG/M2 DAILY FOR 5 DAYS), INTRAVENOUS USE
     Route: 042
     Dates: start: 20250804, end: 20250808
  3. VITAMINS [Concomitant]
     Active Substance: VITAMINS
     Dates: start: 20241105
  4. LORATADINE [Concomitant]
     Active Substance: LORATADINE
     Dates: start: 20241119
  5. SYMBICORT [Concomitant]
     Active Substance: BUDESONIDE\FORMOTEROL FUMARATE DIHYDRATE
     Dates: start: 20250207
  6. NARCAN [Concomitant]
     Active Substance: NALOXONE HYDROCHLORIDE
     Dates: start: 20250207
  7. HYDROXYZINE [Concomitant]
     Active Substance: HYDROXYZINE HYDROCHLORIDE
     Dates: start: 20250218
  8. PROMETHAZINE [Concomitant]
     Active Substance: PROMETHAZINE HYDROCHLORIDE
     Dates: start: 20250218, end: 20250726
  9. MAGNESIUM CHLORIDE [Concomitant]
     Active Substance: MAGNESIUM CHLORIDE
     Dates: start: 20250226, end: 20250726
  10. OLANZAPINE [Concomitant]
     Active Substance: OLANZAPINE
     Dates: start: 20250402, end: 20250726
  11. GRANISETRON [Concomitant]
     Active Substance: GRANISETRON
     Dates: start: 20250419
  12. POTASSIUM [Concomitant]
     Active Substance: POTASSIUM
     Dates: start: 20250526
  13. SODIUM PHOSPHATES [Concomitant]
     Active Substance: SODIUM PHOSPHATE, DIBASIC, ANHYDROUS\SODIUM PHOSPHATE, MONOBASIC, MONOHYDRATE
     Dates: start: 20250526
  14. POTASSIUM CHLORIDE [Concomitant]
     Active Substance: POTASSIUM CHLORIDE
     Dates: start: 20250526
  15. OXYCODONE [Concomitant]
     Active Substance: OXYCODONE
     Dates: start: 20250707
  16. ETHINYL ESTRADIOL\NORETHINDRONE ACETATE [Concomitant]
     Active Substance: ETHINYL ESTRADIOL\NORETHINDRONE ACETATE
     Dates: start: 20250723
  17. POLYETHYLENE GLYCOL [Concomitant]
     Active Substance: POLYETHYLENE GLYCOL
     Dates: start: 20250727
  18. SENNA [Concomitant]
     Active Substance: SENNOSIDES
     Dates: start: 20250727
  19. MORPHINE [Concomitant]
     Active Substance: MORPHINE
     Dates: start: 20250727
  20. METHADONE [Concomitant]
     Active Substance: METHADONE HYDROCHLORIDE
     Dates: start: 20250728
  21. PROCHLORPERAZINE [Concomitant]
     Active Substance: PROCHLORPERAZINE
     Dates: start: 20250730
  22. LOPERAMIDE [Concomitant]
     Active Substance: LOPERAMIDE
     Dates: start: 20250731
  23. IRINOTECAN [Suspect]
     Active Substance: IRINOTECAN
     Indication: Ewing^s sarcoma
     Dosage: 187.5 MG/M2, Q3WEEKS (37.5 MG/M2 DAILY FOR 5 DAYS), INTRAVENOUS USE
     Route: 042
     Dates: start: 20250904, end: 20250908
  24. TEMOZOLOMIDE [Suspect]
     Active Substance: TEMOZOLOMIDE
     Indication: Ewing^s sarcoma
     Dosage: 250 MG/M2, Q3WEEKS (50 MG/M2 DAILY FOR 5 DAYS)
     Dates: start: 20250904, end: 20250908

REACTIONS (1)
  - Febrile neutropenia [Recovered/Resolved]

NARRATIVE: CASE EVENT DATE: 20250814
